FAERS Safety Report 20989052 (Version 1)
Quarter: 2022Q2

REPORT INFORMATION
  Report Type: Spontaneous
  Country: US (occurrence: US)
  Receive Date: 20220621
  Receipt Date: 20220621
  Transmission Date: 20220721
  Serious: Yes (Other)
  Sender: FDA-Public Use
  Company Number: US-INCYTE CORPORATION-2022IN005920

PATIENT

DRUGS (2)
  1. PEMAZYRE [Suspect]
     Active Substance: PEMIGATINIB
     Indication: Cholangiocarcinoma
     Dosage: 9 MILLIGRAM
     Route: 065
  2. PEMAZYRE [Suspect]
     Active Substance: PEMIGATINIB
     Dosage: LOWER DOSE
     Route: 065

REACTIONS (3)
  - Renal impairment [Unknown]
  - Pain [Unknown]
  - Fatigue [Unknown]
